FAERS Safety Report 17298165 (Version 3)
Quarter: 2020Q1

REPORT INFORMATION
  Report Type: Report from Study
  Country: GR (occurrence: GR)
  Receive Date: 20200121
  Receipt Date: 20200203
  Transmission Date: 20200409
  Serious: Yes (Life-Threatening, Hospitalization)
  Sender: FDA-Public Use
  Company Number: GR-CELGENEUS-GRC-20191207253

PATIENT
  Age: 64 Year
  Sex: Male

DRUGS (21)
  1. FLUSAL [Concomitant]
     Indication: PROPHYLAXIS
     Dosage: 40 MILLIGRAM
     Route: 048
     Dates: start: 20191119, end: 20200105
  2. ALPHAZOL [Concomitant]
     Indication: PROPHYLAXIS
     Dosage: 1 MICROGRAM
     Route: 048
     Dates: start: 20190514, end: 20200105
  3. TROFOCARD [Concomitant]
     Indication: PROPHYLAXIS
     Dosage: 614.8 MILLIGRAM
     Route: 048
     Dates: start: 20191119, end: 20200105
  4. QUEPIN [Concomitant]
     Active Substance: QUETIAPINE
     Indication: SCHIZOPHRENIA
     Dosage: 100 MILLIGRAM
     Route: 048
     Dates: start: 2010, end: 20200105
  5. ZYPADHERA [Concomitant]
     Active Substance: OLANZAPINE PAMOATE
     Indication: SCHIZOPHRENIA
     Dosage: 21.4286 MILLIGRAM
     Route: 058
     Dates: start: 2015, end: 20200105
  6. EPORATIO [Concomitant]
     Active Substance: ERYTHROPOIETIN
     Indication: PRODUCT USED FOR UNKNOWN INDICATION
     Route: 058
     Dates: start: 20191203, end: 20200105
  7. POMALIDOMIDE [Suspect]
     Active Substance: POMALIDOMIDE
     Indication: PLASMA CELL MYELOMA
     Dosage: 4 MILLIGRAM
     Route: 048
     Dates: start: 20191203, end: 20191206
  8. OLARTAN [Concomitant]
     Active Substance: OLMESARTAN MEDOXOMIL
     Indication: HYPERTENSION
     Dosage: 32.5 MILLIGRAM
     Route: 065
     Dates: start: 20190514, end: 20200105
  9. DEPRERAM [Concomitant]
     Indication: DEPRESSION
     Dosage: 30 MILLIGRAM
     Route: 048
     Dates: start: 2010, end: 20200105
  10. TAVOR [Concomitant]
     Indication: SCHIZOPHRENIA
  11. XARELTO [Concomitant]
     Active Substance: RIVAROXABAN
     Indication: AORTIC STENOSIS
     Dosage: 15 MILLIGRAM
     Route: 048
     Dates: start: 20190514, end: 20200105
  12. LOPRESSOR [Concomitant]
     Active Substance: METOPROLOL TARTRATE
     Indication: HYPERTENSION
     Dosage: 100 MILLIGRAM
     Route: 065
     Dates: start: 20191119, end: 20200105
  13. ZYLAPOUR [Concomitant]
     Indication: PROPHYLAXIS
     Dosage: 300 MILLIGRAM
     Route: 048
     Dates: start: 20191203, end: 20200105
  14. FILICINE [Concomitant]
     Indication: PROPHYLAXIS
     Dosage: 5 MILLIGRAM
     Route: 048
     Dates: start: 20191203, end: 20200105
  15. JANUMET [Concomitant]
     Active Substance: METFORMIN HYDROCHLORIDE\SITAGLIPTIN PHOSPHATE
     Indication: TYPE 2 DIABETES MELLITUS
     Dosage: 1000 MILLIGRAM
     Route: 048
     Dates: start: 2009, end: 20200105
  16. TRAMAL [Concomitant]
     Active Substance: TRAMADOL
     Indication: SCHIZOPHRENIA
     Dosage: 100 MILLIGRAM
     Route: 048
     Dates: start: 2010, end: 20200105
  17. BACTRIMEL [Concomitant]
     Active Substance: SULFAMETHOXAZOLE\TRIMETHOPRIM
     Indication: PROPHYLAXIS
     Dosage: 1920 MILLIGRAM
     Route: 048
     Dates: start: 20191203, end: 20200105
  18. TAVOR [Concomitant]
     Indication: DEPRESSION
     Dosage: 22.5 MILLIGRAM
     Route: 048
     Dates: start: 2010, end: 20200105
  19. LAPENZA [Concomitant]
     Indication: SCHIZOPHRENIA
     Dosage: 10 MILLIGRAM
     Route: 048
     Dates: start: 2010, end: 20200105
  20. DEXAMETHASONE. [Suspect]
     Active Substance: DEXAMETHASONE
     Indication: PLASMA CELL MYELOMA
     Dosage: 40 MILLIGRAM
     Route: 048
     Dates: start: 20191203, end: 20191203
  21. VALTREX [Concomitant]
     Active Substance: VALACYCLOVIR HYDROCHLORIDE
     Indication: PROPHYLAXIS
     Dosage: 500 MILLIGRAM
     Route: 048
     Dates: start: 20191203, end: 20200105

REACTIONS (1)
  - Sepsis [Recovered/Resolved]

NARRATIVE: CASE EVENT DATE: 20191209
